FAERS Safety Report 23732830 (Version 9)
Quarter: 2025Q2

REPORT INFORMATION
  Report Type: Spontaneous
  Country: US (occurrence: US)
  Receive Date: 20240411
  Receipt Date: 20250506
  Transmission Date: 20250717
  Serious: Yes (Other)
  Sender: PFIZER
  Company Number: US-PFIZER INC-PV202400045720

PATIENT
  Age: 86 Year
  Sex: Female

DRUGS (4)
  1. IBRANCE [Suspect]
     Active Substance: PALBOCICLIB
     Indication: Breast cancer metastatic
     Route: 048
     Dates: start: 202310
  2. IBRANCE [Suspect]
     Active Substance: PALBOCICLIB
     Route: 048
  3. IBRANCE [Suspect]
     Active Substance: PALBOCICLIB
     Route: 048
  4. FASLODEX [Suspect]
     Active Substance: FULVESTRANT
     Indication: Breast cancer metastatic
     Dates: start: 202310

REACTIONS (8)
  - Dementia [Unknown]
  - Neutropenia [Unknown]
  - Dementia Alzheimer^s type [Unknown]
  - Delirium [Unknown]
  - Pollakiuria [Unknown]
  - Memory impairment [Unknown]
  - Fatigue [Unknown]
  - Amnesia [Unknown]
